FAERS Safety Report 15349312 (Version 1)
Quarter: 2018Q3

REPORT INFORMATION
  Report Type: Spontaneous
  Country: CA (occurrence: CA)
  Receive Date: 20180904
  Receipt Date: 20180904
  Transmission Date: 20181010
  Serious: Yes (Disabling, Other)
  Sender: FDA-Public Use
  Company Number: CA-ASCEND THERAPEUTICS-2054600

PATIENT
  Age: 58 Year
  Sex: Female

DRUGS (6)
  1. ESTROGEL [Suspect]
     Active Substance: ESTRADIOL
     Indication: MENOPAUSAL SYMPTOMS
     Route: 061
  2. PROMETRIUM [Suspect]
     Active Substance: PROGESTERONE
     Route: 048
  3. METFORMIN [Concomitant]
     Active Substance: METFORMIN HYDROCHLORIDE
  4. PROMETRIUM [Suspect]
     Active Substance: PROGESTERONE
     Route: 048
     Dates: start: 201306
  5. PROMETRIUM [Suspect]
     Active Substance: PROGESTERONE
     Route: 048
  6. PROMETRIUM [Suspect]
     Active Substance: PROGESTERONE
     Route: 048

REACTIONS (14)
  - Malaise [Recovering/Resolving]
  - Malaise [Unknown]
  - Eye pain [Not Recovered/Not Resolved]
  - Disturbance in attention [Recovering/Resolving]
  - Urinary tract infection bacterial [Unknown]
  - Off label use [None]
  - Diarrhoea [Recovering/Resolving]
  - Movement disorder [Unknown]
  - Memory impairment [Unknown]
  - Migraine [Not Recovered/Not Resolved]
  - Epilepsy [Recovering/Resolving]
  - Seizure [Recovering/Resolving]
  - Weight decreased [Unknown]
  - Drug hypersensitivity [Unknown]

NARRATIVE: CASE EVENT DATE: 2011
